FAERS Safety Report 23899059 (Version 2)
Quarter: 2024Q4

REPORT INFORMATION
  Report Type: Spontaneous
  Country: US (occurrence: US)
  Receive Date: 20240525
  Receipt Date: 20241015
  Transmission Date: 20250115
  Serious: Yes (Hospitalization)
  Sender: TEVA
  Company Number: US-TEVA-VS-3198419

PATIENT
  Age: 34 Year
  Sex: Female

DRUGS (2)
  1. TREPROSTINIL [Suspect]
     Active Substance: TREPROSTINIL
     Indication: Pulmonary arterial hypertension
     Dosage: DOSAGE: 10 MG/ML 30 NANOGRAMS/KG/MIN, 10MG/ML
     Route: 065
     Dates: start: 20230628, end: 20240113
  2. DOXYCYCLINE [Suspect]
     Active Substance: DOXYCYCLINE
     Indication: Product used for unknown indication
     Route: 065

REACTIONS (2)
  - Administration site infection [Unknown]
  - Rash [Unknown]

NARRATIVE: CASE EVENT DATE: 20240101
